FAERS Safety Report 11868203 (Version 1)
Quarter: 2015Q4

REPORT INFORMATION
  Report Type: Spontaneous
  Country: JP (occurrence: JP)
  Receive Date: 20151224
  Receipt Date: 20151224
  Transmission Date: 20160305
  Serious: Yes (Hospitalization)
  Sender: FDA-Public Use
  Company Number: JP-ASTRAZENECA-2015SF28774

PATIENT
  Age: 24 Year
  Sex: Female

DRUGS (5)
  1. BYETTA [Suspect]
     Active Substance: EXENATIDE
     Route: 065
  2. ORAL DIABETIC DRUG [Concomitant]
  3. INSULIN [Concomitant]
     Active Substance: INSULIN NOS
  4. BYDUREON [Suspect]
     Active Substance: EXENATIDE
     Route: 065
  5. LIRAGLUTIDE [Concomitant]
     Active Substance: LIRAGLUTIDE

REACTIONS (3)
  - Decreased appetite [Unknown]
  - Anger [Unknown]
  - Glycosylated haemoglobin increased [Unknown]
